FAERS Safety Report 17644930 (Version 1)
Quarter: 2020Q2

REPORT INFORMATION
  Report Type: Spontaneous
  Country: US (occurrence: US)
  Receive Date: 20200408
  Receipt Date: 20200408
  Transmission Date: 20200713
  Serious: Yes (Other)
  Sender: FDA-Public Use
  Company Number: None

PATIENT
  Age: 79 Year
  Sex: Female
  Weight: 65.77 kg

DRUGS (1)
  1. METOPROLOL SUCCINATE 25MG [Suspect]
     Active Substance: METOPROLOL SUCCINATE
     Indication: BLOOD PRESSURE MEASUREMENT
     Dosage: ?          QUANTITY:25 MG MILLIGRAM(S);?
     Route: 048
     Dates: start: 202001, end: 20200312

REACTIONS (11)
  - Muscle spasms [None]
  - Urinary incontinence [None]
  - Decreased appetite [None]
  - Pain [None]
  - Throat tightness [None]
  - Angina pectoris [None]
  - Swelling [None]
  - Migraine [None]
  - Product substitution issue [None]
  - Iodine allergy [None]
  - Constipation [None]

NARRATIVE: CASE EVENT DATE: 20200115
